FAERS Safety Report 5833102-3 (Version None)
Quarter: 2008Q3

REPORT INFORMATION
  Report Type: 
  Country: None (occurrence: None)
  Receive Date: 20080804
  Receipt Date: 20080804
  Transmission Date: 20090109
  Serious: Yes (Death, Life-Threatening, Hospitalization, Disabling, Other)
  Sender: FDA-Public Use
  Company Number: None

PATIENT
  Age: 75 Year
  Sex: Male
  Weight: 79.3795 kg

DRUGS (2)
  1. METFORMIN HCL [Suspect]
     Indication: DRUG ABUSE
  2. METOPROLOL SUCCINATE [Suspect]
     Indication: DRUG ABUSE

REACTIONS (1)
  - UNEVALUABLE EVENT [None]
